FAERS Safety Report 6237679-8 (Version None)
Quarter: 2009Q2

REPORT INFORMATION
  Report Type: 
  Country: None (occurrence: None)
  Receive Date: 20090617
  Receipt Date: 20090602
  Transmission Date: 20091009
  Serious: Yes (Death, Hospitalization)
  Sender: FDA-Public Use
  Company Number: AE 2009-071

PATIENT
  Age: 58 Year
  Sex: Male

DRUGS (1)
  1. FAZACLO ODT [Suspect]
     Dosage: 250 MG DAILY PO
     Route: 048
     Dates: start: 20090326, end: 20090401

REACTIONS (1)
  - SKIN CANCER METASTATIC [None]
